FAERS Safety Report 10216359 (Version 1)
Quarter: 2014Q2

REPORT INFORMATION
  Report Type: Spontaneous
  Country: CN (occurrence: CN)
  Receive Date: 20140604
  Receipt Date: 20140604
  Transmission Date: 20141212
  Serious: Yes (Hospitalization)
  Sender: FDA-Public Use
  Company Number: US-ASTRAZENECA-2014SE38709

PATIENT
  Age: 19919 Day
  Sex: Female
  Weight: 54 kg

DRUGS (2)
  1. BLOPRESS [Suspect]
     Indication: HYPERTENSION
     Route: 048
     Dates: start: 20121018, end: 20121203
  2. PLENDIL/FELODIPINE [Concomitant]
     Indication: HYPERTENSION
     Route: 048
     Dates: start: 20121018, end: 20121203

REACTIONS (1)
  - Photosensitivity reaction [Recovering/Resolving]
